FAERS Safety Report 9829069 (Version 1)
Quarter: 2014Q1

REPORT INFORMATION
  Report Type: Spontaneous
  Country: CO (occurrence: CO)
  Receive Date: 20140119
  Receipt Date: 20140119
  Transmission Date: 20141002
  Serious: Yes (Life-Threatening, Hospitalization, Disabling)
  Sender: FDA-Public Use
  Company Number: CO-ASTRAZENECA-2014SE03244

PATIENT
  Age: 60 Year
  Sex: Male
  Weight: 76 kg

DRUGS (7)
  1. BRILINTA [Suspect]
     Route: 048
     Dates: start: 20140111, end: 20140111
  2. PREDNISOLONE [Concomitant]
     Indication: RHEUMATOID ARTHRITIS
     Dosage: 10 MG DAILY, IRREGULAR INTAKE
     Route: 048
  3. OMEGA 3 [Concomitant]
     Route: 048
  4. ENOXAPARINE [Concomitant]
     Route: 058
  5. TIROFIBAN [Concomitant]
     Dosage: DOSE DIRECT 2.4 MG AND INFUSION TIME 0.875 MG/H
     Route: 040
  6. CARDIOASPIRIN [Concomitant]
     Route: 048
  7. HEPARIN [Concomitant]
     Dosage: NO FRACTIONATED 6.500UDS ENDOVENOUS (60U/K)

REACTIONS (7)
  - Sensory loss [Unknown]
  - Altered state of consciousness [Unknown]
  - Coma [Unknown]
  - Haemorrhage intracranial [Recovered/Resolved]
  - Muscular weakness [Unknown]
  - Gait disturbance [Unknown]
  - Sensory loss [Unknown]
